FAERS Safety Report 7512097-0 (Version None)
Quarter: 2011Q2

REPORT INFORMATION
  Report Type: 
  Country: None (occurrence: None)
  Receive Date: 20110531
  Receipt Date: 20110516
  Transmission Date: 20111010
  Serious: Yes (Other)
  Sender: FDA-Public Use
  Company Number: US-BAYER-2011-016041

PATIENT
  Age: 35 Year
  Sex: Female

DRUGS (6)
  1. LIPITOR [Concomitant]
  2. WELLBUTRIN [Concomitant]
  3. YAZ [Suspect]
     Indication: ACNE
     Route: 048
  4. DROSPIRENONE AND ETHINYL ESTRADIOL [Suspect]
     Indication: PREMENSTRUAL SYNDROME
  5. DROSPIRENONE AND ETHINYL ESTRADIOL [Suspect]
     Indication: ACNE
     Dosage: UNK
     Route: 048
     Dates: start: 20080101, end: 20090101
  6. YASMIN [Suspect]
     Indication: ACNE
     Route: 048

REACTIONS (3)
  - CHOLECYSTITIS CHRONIC [None]
  - GALLBLADDER DISORDER [None]
  - BLOOD CHOLESTEROL INCREASED [None]
